FAERS Safety Report 5798555-8 (Version None)
Quarter: 2008Q3

REPORT INFORMATION
  Report Type: 
  Country: None (occurrence: None)
  Receive Date: 20080701
  Receipt Date: 20080701
  Transmission Date: 20090109
  Serious: Yes (Hospitalization)
  Sender: FDA-Public Use
  Company Number: None

PATIENT
  Age: 76 Year

DRUGS (1)
  1. PROCHLORPERAZINE [Suspect]
     Indication: NAUSEA
     Dosage: 10 MG PRN IV
     Route: 042
     Dates: start: 20080523, end: 20080528

REACTIONS (1)
  - STUPOR [None]
